FAERS Safety Report 9727800 (Version 2)
Quarter: 2013Q4

REPORT INFORMATION
  Report Type: Spontaneous
  Country: US (occurrence: US)
  Receive Date: 20131204
  Receipt Date: 20131210
  Transmission Date: 20140711
  Serious: Yes (Other)
  Sender: FDA-Public Use
  Company Number: US-AMGEN-USASP2013083904

PATIENT
  Age: 58 Year
  Sex: Female

DRUGS (2)
  1. ENBREL [Suspect]
     Indication: RHEUMATOID ARTHRITIS
     Dosage: 50 MG, WEEKLY
     Route: 058
     Dates: start: 20121106
  2. METHOTREXATE [Concomitant]
     Dosage: 20 MG, QWK
     Route: 048
     Dates: start: 201206

REACTIONS (5)
  - Pain in extremity [Not Recovered/Not Resolved]
  - Oropharyngeal pain [Recovered/Resolved]
  - Diarrhoea [Recovered/Resolved]
  - Upper respiratory tract infection [Recovered/Resolved]
  - Injection site haemorrhage [Recovered/Resolved]
